FAERS Safety Report 7918565-1 (Version None)
Quarter: 2011Q4

REPORT INFORMATION
  Report Type: 
  Country: None (occurrence: None)
  Receive Date: 20111116
  Receipt Date: 20111107
  Transmission Date: 20120403
  Serious: Yes (Hospitalization)
  Sender: FDA-Public Use
  Company Number: US-BAYER-2011-052147

PATIENT
  Age: 18 Year
  Sex: Female
  Weight: 97.052 kg

DRUGS (3)
  1. BENTYL [Concomitant]
     Dosage: 20 MG, PRN
  2. YASMIN [Suspect]
     Dosage: UNK
     Dates: start: 20050101, end: 20070101
  3. PERCOCET [Concomitant]
     Dosage: UNK UNK, PRN

REACTIONS (5)
  - CHOLELITHIASIS [None]
  - PAIN [None]
  - INJURY [None]
  - CHOLECYSTITIS CHRONIC [None]
  - GALLBLADDER DISORDER [None]
